FAERS Safety Report 4536642-2 (Version None)
Quarter: 2004Q4

REPORT INFORMATION
  Report Type: 
  Country: None (occurrence: None)
  Receive Date: 20041220
  Receipt Date: 20041207
  Transmission Date: 20050328
  Serious: Yes (Hospitalization)
  Sender: FDA-Public Use
  Company Number: 2004213562FR

PATIENT
  Age: 43 Year
  Sex: Female

DRUGS (8)
  1. EPIRUBICIN HYDROCHLORIDE (EPIRUBICIN HYDROCHLORIDE) [Suspect]
     Indication: BREAST CANCER
     Dosage: (CYCLIC)
  2. CYCLOPHOSPHAMIDE [Suspect]
     Indication: BREAST CANCER
     Dosage: (CYCLIC)
  3. FLUOROURACIL [Suspect]
     Indication: BREAST CANCER
     Dosage: (CYCLIC)
  4. DOCETAXEL (DOCETAXEL) [Suspect]
     Indication: BREAST CANCER
     Dosage: CYCLIC
  5. MESNA [Suspect]
     Indication: BREAST CANCER
     Dosage: (CYCLIC)
  6. FILGRASTIM (FILGRASTIM) [Suspect]
     Indication: ILL-DEFINED DISORDER
     Dosage: (CYCLIC)
  7. DAUNORUBICIN HCL [Concomitant]
  8. CYTARABINE [Concomitant]

REACTIONS (10)
  - ACUTE MYELOID LEUKAEMIA [None]
  - ASTHENIA [None]
  - BLOOD LACTATE DEHYDROGENASE INCREASED [None]
  - DISSEMINATED INTRAVASCULAR COAGULATION [None]
  - EJECTION FRACTION DECREASED [None]
  - FLUID RETENTION [None]
  - GENERAL PHYSICAL HEALTH DETERIORATION [None]
  - HAEMOGLOBIN DECREASED [None]
  - LEUKOCYTOSIS [None]
  - PLEURAL EFFUSION [None]
